FAERS Safety Report 7639817-9 (Version None)
Quarter: 2011Q3

REPORT INFORMATION
  Report Type: 
  Country: None (occurrence: None)
  Receive Date: 20110727
  Receipt Date: 20110722
  Transmission Date: 20111222
  Serious: Yes (Hospitalization, Other)
  Sender: FDA-Public Use
  Company Number: US-B.I. PHARMACEUTICALS,INC./RIDGEFIELD-2011-BP-18397BP

PATIENT
  Sex: Male

DRUGS (8)
  1. RISPERDAL [Concomitant]
     Indication: DEMENTIA
     Dosage: 1 MG
  2. DIGOXIN [Concomitant]
     Indication: ATRIAL FIBRILLATION
     Dosage: 0.125 MG
  3. ZETIA [Concomitant]
     Indication: BLOOD CHOLESTEROL INCREASED
     Dosage: 10 MG
  4. PRADAXA [Suspect]
     Indication: ATRIAL FIBRILLATION
     Dosage: 300 MG
     Route: 048
     Dates: start: 20110701, end: 20110711
  5. METOPROLOL TARTRATE [Concomitant]
     Indication: ATRIAL FIBRILLATION
     Dosage: 50 MG
  6. PRAVASTATIN [Concomitant]
     Indication: BLOOD CHOLESTEROL INCREASED
     Dosage: 80 MG
  7. LASIX [Concomitant]
     Indication: OEDEMA
  8. COUMADIN [Concomitant]
     Indication: ATRIAL FIBRILLATION
     Dosage: 7.5 MG
     Dates: start: 20110718

REACTIONS (1)
  - GASTROINTESTINAL HAEMORRHAGE [None]
